FAERS Safety Report 16147885 (Version 2)
Quarter: 2020Q2

REPORT INFORMATION
  Report Type: Spontaneous
  Country: US (occurrence: US)
  Receive Date: 20190402
  Receipt Date: 20200408
  Transmission Date: 20200713
  Serious: No
  Sender: FDA-Public Use
  Company Number: US-ALLERGAN-1902729US

PATIENT
  Age: 47 Year
  Sex: Female
  Weight: 113.38 kg

DRUGS (1)
  1. LILETTA [Suspect]
     Active Substance: LEVONORGESTREL
     Indication: PRODUCT USED FOR UNKNOWN INDICATION
     Dosage: 52 MG, SINGLE
     Route: 015
     Dates: start: 20180927, end: 20181018

REACTIONS (2)
  - Device expulsion [Recovered/Resolved with Sequelae]
  - Medical device discomfort [Recovered/Resolved with Sequelae]

NARRATIVE: CASE EVENT DATE: 20180927
